FAERS Safety Report 11702234 (Version 6)
Quarter: 2015Q4

REPORT INFORMATION
  Report Type: Report from Study
  Country: BE (occurrence: BE)
  Receive Date: 20151105
  Receipt Date: 20151229
  Transmission Date: 20160304
  Serious: Yes (Hospitalization, Other)
  Sender: FDA-Public Use
  Company Number: BE-ABBVIE-15P-013-1491651-00

PATIENT
  Sex: Male

DRUGS (6)
  1. DAFALGAN [Concomitant]
     Active Substance: ACETAMINOPHEN
     Indication: PRODUCT USED FOR UNKNOWN INDICATION
  2. DUODOPA [Suspect]
     Active Substance: CARBIDOPA\LEVODOPA
     Dosage: AM=5.5ML; CD=2.9ML/H DURING 16HRS; ED=1.5ML
     Route: 050
     Dates: start: 20150622, end: 20150728
  3. PANTOMED [Concomitant]
     Active Substance: DEXPANTHENOL
     Indication: PRODUCT USED FOR UNKNOWN INDICATION
  4. DUODOPA [Suspect]
     Active Substance: CARBIDOPA\LEVODOPA
     Indication: PARKINSON^S DISEASE
     Dosage: AM=6.5ML; CD=3.1ML/H DURING 16HRS; ED=1.5ML
     Route: 050
     Dates: start: 20150209, end: 20150622
  5. RIVOTRIL [Concomitant]
     Active Substance: CLONAZEPAM
     Indication: PRODUCT USED FOR UNKNOWN INDICATION
  6. DUODOPA [Suspect]
     Active Substance: CARBIDOPA\LEVODOPA
     Dosage: AM=5.3ML; CD=3.1ML/H DURING 16HRS; ED=1.5ML
     Route: 050
     Dates: start: 20150728

REACTIONS (8)
  - Epilepsy [Recovered/Resolved]
  - Meningioma [Unknown]
  - General physical health deterioration [Unknown]
  - Endotracheal intubation [Recovered/Resolved]
  - Cerebrovascular accident [Unknown]
  - Vertebral artery thrombosis [Unknown]
  - Vertebral artery stenosis [Unknown]
  - Gait disturbance [Unknown]
